FAERS Safety Report 7511268-7 (Version None)
Quarter: 2011Q2

REPORT INFORMATION
  Report Type: 
  Country: None (occurrence: None)
  Receive Date: 20110531
  Receipt Date: 20110503
  Transmission Date: 20111010
  Serious: Yes (Death, Hospitalization, Other)
  Sender: FDA-Public Use
  Company Number: US-BAYER-201020467NA

PATIENT
  Age: 21 Year
  Sex: Female
  Weight: 54.422 kg

DRUGS (16)
  1. SINGULAIR [Concomitant]
  2. TORADOL [Concomitant]
     Dosage: 10 MG, UNK
     Dates: start: 20080227
  3. PROTONIX [Concomitant]
     Dosage: 40 MG, UNK
     Dates: start: 20080227
  4. AMBIEN [Concomitant]
     Indication: INSOMNIA
     Dosage: UNK UNK, HS
     Dates: start: 20080226
  5. TRAZODONE HCL [Concomitant]
     Dosage: 150 MG, HS
  6. YAZ [Suspect]
     Indication: PREMENSTRUAL SYNDROME
     Dosage: UNK UNK, QD
     Dates: start: 20080125, end: 20080226
  7. MULTI-VITAMIN [Concomitant]
  8. CLONAZEPAM [Concomitant]
  9. IBUPROFEN [Concomitant]
     Indication: DYSMENORRHOEA
  10. UNISOM [Concomitant]
     Indication: INSOMNIA
     Dosage: UNK
     Dates: start: 20080201, end: 20080201
  11. YAZ [Suspect]
  12. FLEXERIL [Concomitant]
     Indication: INSOMNIA
  13. VALIUM [Concomitant]
     Indication: INSOMNIA
  14. CYMBALTA [Concomitant]
     Dosage: 300 MG, UNK
  15. YAZ [Suspect]
  16. ANAPROX DS [Concomitant]

REACTIONS (1)
  - CONVULSION [None]
